FAERS Safety Report 6685312-3 (Version None)
Quarter: 2010Q2

REPORT INFORMATION
  Report Type: 
  Country: None (occurrence: None)
  Receive Date: 20100416
  Receipt Date: 20100405
  Transmission Date: 20101027
  Serious: Yes (Hospitalization, Other)
  Sender: FDA-Public Use
  Company Number: GB-GENENTECH-300429

PATIENT
  Age: 46 Year
  Sex: Female

DRUGS (3)
  1. RITUXIMAB [Suspect]
     Indication: CASTLEMAN'S DISEASE
     Dosage: 375 MG/M2, UNK
     Route: 065
  2. HYDROCORTISONE [Suspect]
     Indication: CASTLEMAN'S DISEASE
     Dosage: UNK
     Route: 065
  3. RASBURICASE [Suspect]
     Indication: CASTLEMAN'S DISEASE
     Dosage: UNK
     Route: 065

REACTIONS (7)
  - ACUTE RESPIRATORY DISTRESS SYNDROME [None]
  - BLOOD CREATININE INCREASED [None]
  - DISSEMINATED INTRAVASCULAR COAGULATION [None]
  - METABOLIC ACIDOSIS [None]
  - MULTI-ORGAN FAILURE [None]
  - OLIGURIA [None]
  - RENAL FAILURE ACUTE [None]
